FAERS Safety Report 18876130 (Version 1)
Quarter: 2021Q1

REPORT INFORMATION
  Report Type: Spontaneous
  Country: DE (occurrence: DE)
  Receive Date: 20210210
  Receipt Date: 20210210
  Transmission Date: 20210420
  Serious: Yes (Congenital Anomaly, Other)
  Sender: FDA-Public Use
  Company Number: DE-ALLERGAN-2105689US

PATIENT
  Sex: Female
  Weight: 2.77 kg

DRUGS (7)
  1. ESTRIFAM [ESTRADIOL;ESTRIOL] [Concomitant]
     Active Substance: ESTRADIOL\ESTRIOL
     Route: 064
  2. DEXAMETHASONE. [Concomitant]
     Active Substance: DEXAMETHASONE
     Dosage: PROBABLY FOR FEMALE INFERTILIY OR PROPHYLAXIS OF ABORTION.
     Route: 064
  3. OXYBUTYNIN. [Suspect]
     Active Substance: OXYBUTYNIN CHLORIDE
     Indication: FOETAL EXPOSURE DURING PREGNANCY
     Route: 064
  4. L?THYROXIN [Concomitant]
     Active Substance: LEVOTHYROXINE SODIUM
     Dosage: 50 [?G/D ]
     Route: 064
  5. ENOXAPARIN [Concomitant]
     Active Substance: ENOXAPARIN
     Route: 064
  6. ESCITALOPRAM OXALATE ? BP [Suspect]
     Active Substance: ESCITALOPRAM OXALATE
     Indication: FOETAL EXPOSURE DURING PREGNANCY
     Route: 064
  7. PROGESTERON [Concomitant]
     Active Substance: PROGESTERONE
     Route: 064

REACTIONS (2)
  - Talipes [Unknown]
  - Pregnancy [Unknown]
